FAERS Safety Report 9580528 (Version 2)
Quarter: 2013Q4

REPORT INFORMATION
  Report Type: Spontaneous
  Country: DE (occurrence: FR)
  Receive Date: 20131002
  Receipt Date: 20131227
  Transmission Date: 20140711
  Serious: Yes (Other)
  Sender: FDA-Public Use
  Company Number: FR-FRI-1000049307

PATIENT
  Age: 70 Year
  Sex: Male
  Weight: 75 kg

DRUGS (3)
  1. MEMANTINE [Suspect]
     Indication: DEMENTIA ALZHEIMER^S TYPE
     Dosage: 20 MG
     Route: 048
     Dates: start: 201201, end: 201301
  2. EXELON [Suspect]
     Indication: DEMENTIA ALZHEIMER^S TYPE
     Dosage: 4.5 MG
     Route: 048
     Dates: start: 2012
  3. SEROPRAM [Concomitant]
     Dosage: 1 DF

REACTIONS (3)
  - Cholestasis [Recovered/Resolved]
  - Deep vein thrombosis [Recovered/Resolved]
  - Non-alcoholic steatohepatitis [Recovered/Resolved]
